FAERS Safety Report 4281086-4 (Version None)
Quarter: 2004Q1

REPORT INFORMATION
  Report Type: 
  Country: None (occurrence: None)
  Receive Date: 20040123
  Receipt Date: 20030130
  Transmission Date: 20041129
  Serious: Yes (Other)
  Sender: FDA-Public Use
  Company Number: HQWYE138603FEB03

PATIENT
  Age: 63 Year
  Sex: Male
  Weight: 81.72 kg

DRUGS (4)
  1. CORDARONE [Suspect]
     Indication: ARRHYTHMIA SUPRAVENTRICULAR
     Dosage: 400 MG 1X PER 1 DAY, ORAL
     Route: 048
     Dates: start: 19970101, end: 20021225
  2. TEQUIN [Concomitant]
  3. LIPITOR [Concomitant]
  4. ZEBETA [Concomitant]

REACTIONS (3)
  - MUSCLE ATROPHY [None]
  - MUSCULAR WEAKNESS [None]
  - SINUSITIS [None]
